FAERS Safety Report 19643819 (Version 5)
Quarter: 2021Q4

REPORT INFORMATION
  Report Type: Report from Study
  Country: US (occurrence: US)
  Receive Date: 20210730
  Receipt Date: 20211225
  Transmission Date: 20220303
  Serious: No
  Sender: FDA-Public Use
  Company Number: NVSC2021US168518

PATIENT
  Sex: Female

DRUGS (1)
  1. ENTRESTO [Suspect]
     Active Substance: SACUBITRIL\VALSARTAN
     Indication: Product used for unknown indication
     Dosage: 100 MG (49/51 MG), BID
     Route: 048

REACTIONS (6)
  - Feeling abnormal [Recovered/Resolved]
  - Poor quality sleep [Unknown]
  - Product dose omission issue [Recovered/Resolved]
  - Sinusitis [Not Recovered/Not Resolved]
  - Upper-airway cough syndrome [Unknown]
  - Cough [Not Recovered/Not Resolved]
